FAERS Safety Report 5792545-7 (Version None)
Quarter: 2008Q2

REPORT INFORMATION
  Report Type: 
  Country: None (occurrence: None)
  Receive Date: 20080626
  Receipt Date: 20080617
  Transmission Date: 20081010
  Serious: Yes (Other)
  Sender: FDA-Public Use
  Company Number: US-AMGEN-US289605

PATIENT
  Age: 53 Year
  Sex: Female

DRUGS (1)
  1. ENBREL [Suspect]
     Indication: DRUG USE FOR UNKNOWN INDICATION
     Route: 058
     Dates: start: 20030101, end: 20080601

REACTIONS (3)
  - DEMYELINATION [None]
  - DEPRESSED LEVEL OF CONSCIOUSNESS [None]
  - GALLBLADDER OPERATION [None]
